FAERS Safety Report 7153766-4 (Version None)
Quarter: 2010Q4

REPORT INFORMATION
  Report Type: 
  Country: None (occurrence: None)
  Receive Date: 20101213
  Receipt Date: 20101025
  Transmission Date: 20110411
  Serious: No
  Sender: FDA-Public Use
  Company Number: US-ABBOTT-10P-163-0680784-00

PATIENT
  Sex: Male
  Weight: 123.49 kg

DRUGS (1)
  1. MERIDIA [Suspect]
     Indication: WEIGHT DECREASED
     Route: 048
     Dates: start: 20100101, end: 20100801

REACTIONS (2)
  - DIARRHOEA [None]
  - FAECES PALE [None]
